FAERS Safety Report 5883175-7 (Version None)
Quarter: 2008Q3

REPORT INFORMATION
  Report Type: 
  Country: None (occurrence: None)
  Receive Date: 20080915
  Receipt Date: 20080827
  Transmission Date: 20090109
  Serious: Yes (Hospitalization, Other)
  Sender: FDA-Public Use
  Company Number: PHHY2008JP02051

PATIENT
  Weight: 1.752 kg

DRUGS (2)
  1. VOLTAREN [Suspect]
     Dosage: MATERNAL DOSE: 250 MG/DAY
     Route: 064
  2. CIFLOSIN [Suspect]
     Route: 064

REACTIONS (8)
  - APGAR SCORE LOW [None]
  - DILATATION VENTRICULAR [None]
  - DRUG EXPOSURE DURING PREGNANCY [None]
  - DUCTUS ARTERIOSUS STENOSIS FOETAL [None]
  - ECHOGRAPHY ABNORMAL [None]
  - PREMATURE BABY [None]
  - TRICUSPID VALVE INCOMPETENCE [None]
  - UMBILICAL CORD VASCULAR DISORDER [None]
